FAERS Safety Report 9437585 (Version 2)
Quarter: 2014Q2

REPORT INFORMATION
  Report Type: Spontaneous
  Country: US (occurrence: None)
  Receive Date: 20130731
  Receipt Date: 20140418
  Transmission Date: 20141212
  Serious: Yes (Other)
  Sender: FDA-Public Use
  Company Number: FK201302783

PATIENT
  Age: 34 Year
  Sex: Male

DRUGS (6)
  1. BENZOTROPINE [Suspect]
     Indication: PRODUCT USED FOR UNKNOWN INDICATION
  2. HALOPERIDOL [Suspect]
     Indication: PRODUCT USED FOR UNKNOWN INDICATION
  3. CHLORPROMAZINE [Suspect]
     Indication: PRODUCT USED FOR UNKNOWN INDICATION
  4. CITALOPRAM (CITALOPRAM) [Concomitant]
  5. DIVALPROEX (VALPROATE SEMISODIUM) [Concomitant]
  6. HYDROXYZINE (HYDROXYZINE) [Concomitant]

REACTIONS (1)
  - Neuroleptic malignant syndrome [None]
